FAERS Safety Report 21695817 (Version 1)
Quarter: 2022Q4

REPORT INFORMATION
  Report Type: Spontaneous
  Country: US (occurrence: None)
  Receive Date: 20221206
  Receipt Date: 20221206
  Transmission Date: 20230113
  Serious: No
  Sender: FDA-Public Use
  Company Number: None

PATIENT
  Sex: Male

DRUGS (2)
  1. EVEROLIMUS [Suspect]
     Active Substance: EVEROLIMUS
     Indication: Renal cancer
     Dosage: OTHER QUANTITY : 1 TABLET;?FREQUENCY : DAILY;?
     Route: 048
     Dates: start: 202201
  2. LENVIMA [Suspect]
     Active Substance: LENVATINIB

REACTIONS (1)
  - Therapy non-responder [None]
